FAERS Safety Report 6706687-2 (Version None)
Quarter: 2010Q2

REPORT INFORMATION
  Report Type: 
  Country: None (occurrence: None)
  Receive Date: 20100503
  Receipt Date: 20100423
  Transmission Date: 20101027
  Serious: No
  Sender: FDA-Public Use
  Company Number: US-BAYER-201013870BCC

PATIENT
  Age: 82 Year
  Sex: Female
  Weight: 57 kg

DRUGS (5)
  1. ALEVE (CAPLET) [Suspect]
     Indication: NERVE COMPRESSION
     Dosage: AS USED: 440 MG  UNIT DOSE: 220 MG
     Route: 048
     Dates: start: 20061001
  2. LISINOPRIL [Concomitant]
     Route: 065
  3. FUROSIDE [Concomitant]
     Route: 065
  4. LIPITOR [Concomitant]
     Route: 065
     Dates: end: 20070101
  5. CRESTOR [Concomitant]
     Route: 065
     Dates: end: 20070101

REACTIONS (2)
  - MOBILITY DECREASED [None]
  - NERVE COMPRESSION [None]
